FAERS Safety Report 4466823-8 (Version None)
Quarter: 2004Q4

REPORT INFORMATION
  Report Type: 
  Country: None (occurrence: None)
  Receive Date: 20041006
  Receipt Date: 20040706
  Transmission Date: 20050328
  Serious: Yes (Life-Threatening, Hospitalization)
  Sender: FDA-Public Use
  Company Number: DE-ROCHE-373553

PATIENT
  Age: 60 Year
  Sex: Female

DRUGS (8)
  1. INTERFERON ALFA-2A [Suspect]
     Route: 065
     Dates: start: 20040615
  2. INTERFERON ALFA-2A [Suspect]
     Route: 065
     Dates: start: 20040705
  3. PROLEUKIN [Suspect]
     Dosage: PATIENT RECIEVED 18 MILLIONIU SUBCUTANEOUSLY, TWICE PER DAY DURING WEEK FOUR.
     Route: 065
  4. DICODID [Suspect]
     Indication: DRUG USE FOR UNKNOWN INDICATION
     Route: 065
  5. ALLERGOSPASMIN [Suspect]
     Indication: ASTHMA
     Route: 065
  6. VIANI [Concomitant]
     Dosage: DRUG REPORTED AS ^VIANI FORTE^.
     Route: 065
  7. SINGULAIR [Concomitant]
  8. PREDNISOLONE [Concomitant]
     Dates: start: 20040708

REACTIONS (5)
  - ASTHMA [None]
  - DEHYDRATION [None]
  - PRURITUS [None]
  - STATUS ASTHMATICUS [None]
  - VOMITING [None]
